FAERS Safety Report 8895644 (Version 1)
Quarter: 2012Q4

REPORT INFORMATION
  Report Type: 
  Country: DE (occurrence: DE)
  Receive Date: 20121107
  Receipt Date: 20121107
  Transmission Date: 20130627
  Serious: Yes (Life-Threatening, Hospitalization)
  Sender: FDA-Public Use
  Company Number: DE-WATSON-2012-18458

PATIENT
  Sex: Female
  Weight: 82 kg

DRUGS (1)
  1. TAMOXIFEN CITRATE [Suspect]
     Indication: BREAST CANCER IN SITU
     Dosage: 50 mg, daily
     Route: 048
     Dates: start: 200711

REACTIONS (2)
  - Bladder transitional cell carcinoma [Unknown]
  - Haematuria [Unknown]
